FAERS Safety Report 5844486-4 (Version None)
Quarter: 2008Q3

REPORT INFORMATION
  Report Type: 
  Country: None (occurrence: None)
  Receive Date: 20080812
  Receipt Date: 20080731
  Transmission Date: 20090109
  Serious: Yes (Other)
  Sender: FDA-Public Use
  Company Number: 430048J08USA

PATIENT
  Age: 59 Year
  Sex: Male
  Weight: 92.9874 kg

DRUGS (4)
  1. NOVANTRONE [Suspect]
     Indication: MULTIPLE SCLEROSIS
     Dosage: 20 MG/2; 22 MG/2; 21 MG/M2, ONCE
     Route: 042
     Dates: start: 20050711, end: 20060322
  2. NOVANTRONE [Suspect]
     Indication: MULTIPLE SCLEROSIS
     Dosage: 20 MG/2; 22 MG/2; 21 MG/M2, ONCE
     Route: 042
     Dates: start: 20060612, end: 20061204
  3. NOVANTRONE [Suspect]
     Indication: MULTIPLE SCLEROSIS
     Dosage: 20 MG/2; 22 MG/2; 21 MG/M2, ONCE
     Route: 042
     Dates: start: 20070226, end: 20070226
  4. UNSPECIFIED MEDICATIONS (ALL OTHER THERAPEUTIC PRODUCTS) [Concomitant]

REACTIONS (2)
  - EJECTION FRACTION DECREASED [None]
  - FATIGUE [None]
